FAERS Safety Report 7132010-8 (Version None)
Quarter: 2010Q4

REPORT INFORMATION
  Report Type: 
  Country: None (occurrence: None)
  Receive Date: 20101124
  Receipt Date: 20101124
  Transmission Date: 20110411
  Serious: Yes (Hospitalization)
  Sender: FDA-Public Use
  Company Number: None

PATIENT
  Age: 47 Year
  Sex: Male

DRUGS (3)
  1. TRAZODONE HCL [Suspect]
     Indication: SLEEP DISORDER
     Dosage: 50 MG PO PRN 11/1/10 50 MG 11/11/10 50 MG 11/12/10 145 AM 50 MG
     Route: 048
     Dates: start: 20101101
  2. TRAZODONE HCL [Suspect]
     Indication: SLEEP DISORDER
     Dosage: 50 MG PO PRN 11/1/10 50 MG 11/11/10 50 MG 11/12/10 145 AM 50 MG
     Route: 048
     Dates: start: 20101111
  3. TRAZODONE HCL [Suspect]
     Indication: SLEEP DISORDER
     Dosage: 50 MG PO PRN 11/1/10 50 MG 11/11/10 50 MG 11/12/10 145 AM 50 MG
     Route: 048
     Dates: start: 20101112

REACTIONS (1)
  - PRIAPISM [None]
